FAERS Safety Report 14652981 (Version 2)
Quarter: 2018Q2

REPORT INFORMATION
  Report Type: Spontaneous
  Country: US (occurrence: US)
  Receive Date: 20180319
  Receipt Date: 20180522
  Transmission Date: 20180711
  Serious: Yes (Other)
  Sender: FDA-Public Use
  Company Number: US-009507513-1802USA012553

PATIENT
  Age: 28 Year
  Sex: Female
  Weight: 62.59 kg

DRUGS (4)
  1. LEVOTHYROXINE SODIUM. [Concomitant]
     Active Substance: LEVOTHYROXINE SODIUM
     Indication: HYPOTHYROIDISM
     Dosage: 50 MICROGRAM, UNK
     Route: 048
     Dates: start: 20171023
  2. CALCIUM (UNSPECIFIED) [Concomitant]
     Active Substance: CALCIUM
     Dosage: UNK
  3. VITAMINS (UNSPECIFIED) [Concomitant]
     Active Substance: VITAMINS
     Dosage: UNK
  4. NEXPLANON [Suspect]
     Active Substance: ETONOGESTREL
     Indication: CONTRACEPTION
     Dosage: 1 IMPLANT, IN RIGHT ARM
     Route: 059
     Dates: start: 20171023, end: 20180319

REACTIONS (14)
  - Skin discolouration [Not Recovered/Not Resolved]
  - Pain [Recovered/Resolved]
  - Weight decreased [Not Recovered/Not Resolved]
  - Implant site rash [Recovered/Resolved]
  - Implant site erythema [Unknown]
  - Tenderness [Recovered/Resolved]
  - Implant site bruising [Recovered/Resolved]
  - Complication associated with device [Recovered/Resolved]
  - Device dislocation [Recovered/Resolved]
  - Burning sensation [Recovered/Resolved]
  - Blister [Unknown]
  - Scar [Unknown]
  - Implant site pain [Not Recovered/Not Resolved]
  - Implant site haemorrhage [Recovered/Resolved]

NARRATIVE: CASE EVENT DATE: 20171023
